FAERS Safety Report 11860824 (Version 2)
Quarter: 2016Q1

REPORT INFORMATION
  Report Type: Report from Study
  Country: BR (occurrence: BR)
  Receive Date: 20151222
  Receipt Date: 20160303
  Transmission Date: 20160526
  Serious: Yes (Hospitalization)
  Sender: FDA-Public Use
  Company Number: BR-ABBVIE-15K-020-1520497-00

PATIENT
  Age: 28 Year
  Sex: Male
  Weight: 78 kg

DRUGS (3)
  1. HUMIRA [Suspect]
     Active Substance: ADALIMUMAB
     Dosage: WEEK ONE, LOADING DOSE
     Route: 058
     Dates: start: 201110, end: 201110
  2. HUMIRA [Suspect]
     Active Substance: ADALIMUMAB
     Indication: CROHN^S DISEASE
     Dosage: WEEK ZERO, LOADING DOSE
     Route: 058
     Dates: start: 20111001, end: 20111001
  3. HUMIRA [Suspect]
     Active Substance: ADALIMUMAB
     Dosage: MAINTENANCE DOSE
     Route: 058
     Dates: end: 20151204

REACTIONS (12)
  - Weight decreased [Unknown]
  - Asthenia [Unknown]
  - C-reactive protein abnormal [Unknown]
  - Swelling [Unknown]
  - Fluid retention [Unknown]
  - Alanine aminotransferase increased [Unknown]
  - Liver disorder [Recovered/Resolved]
  - Cardiac disorder [Recovering/Resolving]
  - Crohn^s disease [Recovering/Resolving]
  - Red blood cell sedimentation rate abnormal [Unknown]
  - Diarrhoea haemorrhagic [Unknown]
  - Heart rate irregular [Unknown]

NARRATIVE: CASE EVENT DATE: 2015
